FAERS Safety Report 9238723 (Version 1)
Quarter: 2013Q1

REPORT INFORMATION
  Report Type: Spontaneous
  Country: US (occurrence: None)
  Receive Date: 20121101
  Receipt Date: 20121101
  Transmission Date: 20140127
  Serious: No
  Sender: FDA-Public Use
  Company Number: 2012MZ000368

PATIENT
  Age: 55 Year
  Sex: Male
  Weight: 90.72 kg

DRUGS (1)
  1. XEOMIN [Suspect]
     Indication: OROMANDIBULAR DYSTONIA
     Dates: start: 201204, end: 201204

REACTIONS (5)
  - Weight decreased [None]
  - Drug ineffective for unapproved indication [None]
  - Dyspnoea [None]
  - Dry mouth [None]
  - Dysphagia [None]
